FAERS Safety Report 6522820-X (Version None)
Quarter: 2009Q4

REPORT INFORMATION
  Report Type: 
  Country: None (occurrence: None)
  Receive Date: 20091222
  Receipt Date: 20091214
  Transmission Date: 20100525
  Serious: Yes (Other)
  Sender: FDA-Public Use
  Company Number: 1000010876

PATIENT
  Age: 73 Year
  Sex: Female

DRUGS (2)
  1. CITALOPRAM HYDROBROMIDE [Suspect]
     Indication: DEPRESSION
     Dosage: 20 MG (20 MG, 1 IN 1 D), ORAL
     Route: 048
     Dates: start: 20091209, end: 20091209
  2. MIDAZOLAM MALEATE [Concomitant]

REACTIONS (3)
  - HYPONATRAEMIA [None]
  - MUSCULOSKELETAL STIFFNESS [None]
  - PNEUMONIA [None]
